FAERS Safety Report 7965682-6 (Version None)
Quarter: 2011Q4

REPORT INFORMATION
  Report Type: 
  Country: None (occurrence: None)
  Receive Date: 20111208
  Receipt Date: 20111128
  Transmission Date: 20120403
  Serious: Yes (Death)
  Sender: FDA-Public Use
  Company Number: PH-BAXTER-2011BH037618

PATIENT
  Age: 90 Year
  Sex: Female

DRUGS (2)
  1. DIANEAL [Suspect]
     Indication: OEDEMA
     Route: 033
     Dates: start: 20110905, end: 20111127
  2. DIANEAL [Suspect]
     Indication: NASAL CONGESTION
     Route: 033
     Dates: start: 20110905, end: 20111127

REACTIONS (3)
  - CARDIO-RESPIRATORY ARREST [None]
  - PERITONITIS BACTERIAL [None]
  - CONVULSION [None]
